FAERS Safety Report 4427738-4 (Version None)
Quarter: 2004Q3

REPORT INFORMATION
  Report Type: 
  Country: None (occurrence: None)
  Receive Date: 20040817
  Receipt Date: 20040401
  Transmission Date: 20050211
  Serious: Yes (Disabling)
  Sender: FDA-Public Use
  Company Number: IT-GLAXOSMITHKLINE-B0329162A

PATIENT
  Age: 27 Year
  Sex: Female

DRUGS (4)
  1. MALARONE [Suspect]
     Indication: MALARIA PROPHYLAXIS
     Dosage: 350MG PER DAY
     Route: 048
     Dates: start: 20031004, end: 20040106
  2. MINULET [Concomitant]
     Indication: CONTRACEPTION
     Route: 048
  3. TYPHOID VACCINE [Concomitant]
     Indication: PROPHYLAXIS
     Route: 048
  4. YELLOW FEVER VACCINE [Concomitant]
     Indication: PROPHYLAXIS

REACTIONS (1)
  - ALOPECIA [None]
